FAERS Safety Report 4813418-X (Version None)
Quarter: 2005Q4

REPORT INFORMATION
  Report Type: 
  Country: None (occurrence: None)
  Receive Date: 20051026
  Receipt Date: 20051010
  Transmission Date: 20060501
  Serious: Yes (Disabling, Other)
  Sender: FDA-Public Use
  Company Number: USA0510110403

PATIENT
  Age: 76 Year
  Sex: Female

DRUGS (3)
  1. HUMALOG [Suspect]
  2. NOVOLOG [Concomitant]
  3. LANTUS [Concomitant]

REACTIONS (8)
  - BLINDNESS UNILATERAL [None]
  - BLOOD GLUCOSE INCREASED [None]
  - DEVICE MALFUNCTION [None]
  - DIFFICULTY IN WALKING [None]
  - DYSSTASIA [None]
  - NEOPLASM [None]
  - NERVE COMPRESSION [None]
  - PHARMACEUTICAL PRODUCT COMPLAINT [None]
